FAERS Safety Report 4454677-5 (Version None)
Quarter: 2004Q3

REPORT INFORMATION
  Report Type: 
  Country: None (occurrence: None)
  Receive Date: 20040921
  Receipt Date: 20040813
  Transmission Date: 20050211
  Serious: Yes (Hospitalization, Other)
  Sender: FDA-Public Use
  Company Number: US-BRISTOL-MYERS SQUIBB COMPANY-12671095

PATIENT
  Age: 60 Year
  Sex: Female
  Weight: 71 kg

DRUGS (14)
  1. ERBITUX [Suspect]
     Indication: COLON CANCER STAGE III
     Dosage: RECEIVED 65 CC, TOTALLING 130 MG.  PRESCIBED DOSE = 752 MG.
     Route: 042
     Dates: start: 20040730, end: 20040730
  2. ANZEMET [Concomitant]
     Indication: PREMEDICATION
     Route: 042
     Dates: start: 20040730, end: 20040730
  3. BENADRYL [Concomitant]
     Indication: PREMEDICATION
     Route: 042
     Dates: start: 20040730, end: 20040730
  4. DECADRON [Concomitant]
     Indication: PREMEDICATION
     Route: 042
     Dates: start: 20040730, end: 20040730
  5. ZANTAC [Concomitant]
     Indication: PREMEDICATION
     Route: 042
     Dates: start: 20040730, end: 20040730
  6. ATROPINE [Concomitant]
     Indication: PREMEDICATION
  7. CPT-11 [Concomitant]
     Route: 042
     Dates: start: 20040730, end: 20040730
  8. NEXIUM [Concomitant]
     Dates: start: 20021201
  9. CLARITIN [Concomitant]
  10. PRINIVIL [Concomitant]
     Dosage: FOR YEARS.
  11. ASPIRIN [Concomitant]
  12. IMODIUM [Concomitant]
  13. ATIVAN [Concomitant]
     Indication: NAUSEA
  14. TRANXENE [Concomitant]

REACTIONS (4)
  - ATRIAL FIBRILLATION [None]
  - DRY THROAT [None]
  - HEART RATE IRREGULAR [None]
  - LARYNGOSPASM [None]
